FAERS Safety Report 7610358-8 (Version None)
Quarter: 2011Q3

REPORT INFORMATION
  Report Type: 
  Country: None (occurrence: None)
  Receive Date: 20110715
  Receipt Date: 20101108
  Transmission Date: 20111222
  Serious: No
  Sender: FDA-Public Use
  Company Number: A0891304A

PATIENT
  Age: 56 Year
  Sex: Female

DRUGS (9)
  1. ZOLOFT [Concomitant]
  2. ATIVAN [Concomitant]
  3. CLOBETASOL PROPIONATE [Suspect]
     Indication: PSORIASIS
     Dosage: 1APP TWICE PER DAY
     Route: 061
     Dates: start: 20100929, end: 20101001
  4. CRESTOR [Concomitant]
  5. OXYCONTIN [Concomitant]
  6. LORAZEPAM [Concomitant]
  7. NEXIUM [Concomitant]
  8. PREMARIN [Concomitant]
  9. PAIN MEDICATION [Concomitant]

REACTIONS (16)
  - MIDDLE INSOMNIA [None]
  - APPLICATION SITE INDURATION [None]
  - PYREXIA [None]
  - APPLICATION SITE VESICLES [None]
  - BLISTER [None]
  - PAIN OF SKIN [None]
  - ALOPECIA [None]
  - HAIR DISORDER [None]
  - DRY SKIN [None]
  - OVERDOSE [None]
  - MIGRAINE [None]
  - SKIN DISORDER [None]
  - PRURITUS [None]
  - HEADACHE [None]
  - SKIN ULCER [None]
  - DRUG ADMINISTRATION ERROR [None]
